FAERS Safety Report 7125338-9 (Version None)
Quarter: 2010Q4

REPORT INFORMATION
  Report Type: 
  Country: None (occurrence: None)
  Receive Date: 20101129
  Receipt Date: 20101115
  Transmission Date: 20110411
  Serious: Yes (Death, Life-Threatening, Hospitalization, Disabling)
  Sender: FDA-Public Use
  Company Number: US-ROCHE-692702

PATIENT
  Sex: Female
  Weight: 34 kg

DRUGS (6)
  1. CAPECITABINE [Suspect]
     Indication: GLIOMA
     Dosage: DOSE FORM: PILL, AS PER BSA THE TOTAL DRUG ADMINISTERED WAS 2750 MG/ DAY.
     Route: 048
     Dates: start: 20091029, end: 20100310
  2. DECADRON [Concomitant]
     Dates: start: 20091027
  3. DECADRON [Concomitant]
     Dates: start: 20100315, end: 20100403
  4. ZANTAC [Concomitant]
     Dates: start: 20091027, end: 20100403
  5. OCTREOTIDE ACETATE [Concomitant]
     Dates: end: 20100403
  6. LOPERAMIDE [Concomitant]
     Dates: start: 20100311, end: 20100403

REACTIONS (7)
  - CLOSTRIDIUM DIFFICILE COLITIS [None]
  - DIARRHOEA [None]
  - HYPERGLYCAEMIA [None]
  - HYPOKALAEMIA [None]
  - HYPOVOLAEMIA [None]
  - OEDEMA PERIPHERAL [None]
  - VOMITING [None]
